FAERS Safety Report 10157436 (Version 3)
Quarter: 2014Q3

REPORT INFORMATION
  Report Type: Spontaneous
  Country: CA (occurrence: CA)
  Receive Date: 20140507
  Receipt Date: 20140730
  Transmission Date: 20150326
  Serious: Yes (Hospitalization, Other)
  Sender: FDA-Public Use
  Company Number: CA-009507513-1311CAN005160

PATIENT
  Age: 64 Year
  Sex: Male

DRUGS (8)
  1. VICTRELIS TRIPLE [Suspect]
     Active Substance: BOCEPREVIR\PEGINTERFERON ALFA-2B\RIBAVIRIN
     Indication: HEPATITIS C
     Dosage: 2400 MG, QD
     Route: 065
     Dates: start: 201310, end: 20131109
  2. VICTRELIS TRIPLE [Suspect]
     Active Substance: BOCEPREVIR\PEGINTERFERON ALFA-2B\RIBAVIRIN
     Dosage: 150 MICROGRAM, QW
     Route: 058
     Dates: start: 20130922
  3. PEGETRON [Suspect]
     Active Substance: PEGINTERFERON ALFA-2B\RIBAVIRIN
     Dosage: 400 MG AM AND 200 MG PM, BID
     Route: 048
     Dates: start: 20140411
  4. VICTRELIS TRIPLE [Suspect]
     Active Substance: BOCEPREVIR\PEGINTERFERON ALFA-2B\RIBAVIRIN
     Dosage: 150 MICROGRAM, QW
  5. MELOXICAM. [Concomitant]
     Active Substance: MELOXICAM
     Route: 065
  6. PEGETRON [Suspect]
     Active Substance: PEGINTERFERON ALFA-2B\RIBAVIRIN
     Dosage: UNK
     Route: 048
     Dates: start: 20130922, end: 20140410
  7. PEGETRON [Suspect]
     Active Substance: PEGINTERFERON ALFA-2B\RIBAVIRIN
     Indication: HEPATITIS C
     Dosage: 150 MICROGRAM, QW
     Route: 058
     Dates: start: 201308
  8. VICTRELIS TRIPLE [Suspect]
     Active Substance: BOCEPREVIR\PEGINTERFERON ALFA-2B\RIBAVIRIN
     Dosage: 1200 MG, QD
     Route: 048
     Dates: start: 20130922

REACTIONS (16)
  - Product quality issue [Unknown]
  - Emotional distress [Unknown]
  - Pain [Unknown]
  - Transfusion [Unknown]
  - Chronic obstructive pulmonary disease [Unknown]
  - White blood cell count abnormal [Unknown]
  - Dyspnoea [Unknown]
  - Haemoglobin decreased [Unknown]
  - Muscle spasms [Recovered/Resolved]
  - Drug dose omission [Unknown]
  - Underdose [Unknown]
  - Unevaluable event [Unknown]
  - Wound treatment [Unknown]
  - Sinusitis [Unknown]
  - Muscle spasms [Unknown]
  - Ulcer [Not Recovered/Not Resolved]

NARRATIVE: CASE EVENT DATE: 201308
